FAERS Safety Report 6203177-0 (Version None)
Quarter: 2009Q2

REPORT INFORMATION
  Report Type: 
  Country: None (occurrence: None)
  Receive Date: 20090527
  Receipt Date: 20090514
  Transmission Date: 20091009
  Serious: Yes (Other)
  Sender: FDA-Public Use
  Company Number: US-BAYER-200920988NA

PATIENT
  Sex: Female

DRUGS (1)
  1. YAZ [Suspect]
     Indication: CONTRACEPTION
     Dosage: TOTAL DAILY DOSE: 1 DF
     Route: 048

REACTIONS (5)
  - ABDOMINAL PAIN LOWER [None]
  - ABORTION SPONTANEOUS [None]
  - BREAST ENLARGEMENT [None]
  - PREGNANCY ON ORAL CONTRACEPTIVE [None]
  - WEIGHT INCREASED [None]
